FAERS Safety Report 4380542-8 (Version None)
Quarter: 2004Q2

REPORT INFORMATION
  Report Type: 
  Country: None (occurrence: None)
  Receive Date: 20040618
  Receipt Date: 20040510
  Transmission Date: 20050107
  Serious: Yes (Hospitalization)
  Sender: FDA-Public Use
  Company Number: DE-MERCK-0405DEU00077

PATIENT
  Age: 42 Year
  Sex: Male
  Weight: 74 kg

DRUGS (6)
  1. DOMPERIDONE [Concomitant]
     Indication: NAUSEA
     Route: 048
     Dates: start: 20030101
  2. ERGOTAMINE TARTRATE [Concomitant]
     Indication: MIGRAINE
     Route: 065
     Dates: start: 20000101
  3. CIPRALEX [Suspect]
     Indication: MIGRAINE PROPHYLAXIS
     Route: 065
     Dates: start: 20030901, end: 20031101
  4. METOCLOPRAMIDE [Concomitant]
     Indication: NAUSEA
     Route: 048
     Dates: start: 20030101
  5. PETASITES [Concomitant]
     Indication: MIGRAINE PROPHYLAXIS
     Route: 065
     Dates: start: 20030901
  6. MAXALT-MLT [Suspect]
     Indication: MIGRAINE
     Route: 048
     Dates: start: 20020101, end: 20031127

REACTIONS (6)
  - AMNESIA [None]
  - CENTRAL NERVOUS SYSTEM INFLAMMATION [None]
  - EPILEPSY [None]
  - MYOPATHY [None]
  - OVERDOSE [None]
  - PERSONALITY CHANGE [None]
